FAERS Safety Report 7058212-7 (Version None)
Quarter: 2010Q4

REPORT INFORMATION
  Report Type: 
  Country: None (occurrence: None)
  Receive Date: 20101022
  Receipt Date: 20101014
  Transmission Date: 20110411
  Serious: Yes (Hospitalization)
  Sender: FDA-Public Use
  Company Number: AU-ABBOTT-10P-008-0678446-00

PATIENT
  Sex: Female
  Weight: 114 kg

DRUGS (14)
  1. HUMIRA [Suspect]
     Indication: CROHN'S DISEASE
     Dosage: BASELINE
     Route: 058
     Dates: start: 20090819
  2. HUMIRA [Suspect]
     Route: 058
  3. HUMIRA [Suspect]
     Route: 058
  4. LOMOTIL [Concomitant]
     Indication: DIARRHOEA
     Dates: start: 20030101
  5. FOLIC ACID [Concomitant]
     Indication: VITAMIN SUPPLEMENTATION
     Dates: start: 20090101
  6. PELAGO [Concomitant]
     Indication: ARTHRITIS
     Route: 048
     Dates: start: 20060101
  7. YASMIN [Concomitant]
     Indication: CONTRACEPTION
     Dates: start: 20090805
  8. PREDNISONE [Concomitant]
     Indication: CROHN'S DISEASE
  9. AZATHIOPRINE [Concomitant]
     Indication: CROHN'S DISEASE
  10. MESALAZINE [Concomitant]
     Indication: CROHN'S DISEASE
  11. CYANOCOBALAMIN [Concomitant]
     Indication: HYPOVITAMINOSIS
     Route: 050
     Dates: start: 20020101
  12. BLACKMORES SUGAR BALANCE [Concomitant]
     Indication: SUPPLEMENTATION THERAPY
     Dates: start: 20060101
  13. TOCOPHEROL CONCENTRATE CAP [Concomitant]
     Indication: SUPPLEMENTATION THERAPY
     Dates: start: 20070101
  14. PANADEINE CO [Concomitant]
     Indication: ABDOMINAL PAIN
     Dates: start: 20090101

REACTIONS (1)
  - INTESTINAL OBSTRUCTION [None]
